FAERS Safety Report 21916191 (Version 1)
Quarter: 2023Q1

REPORT INFORMATION
  Report Type: Spontaneous
  Country: US (occurrence: None)
  Receive Date: 20230125
  Receipt Date: 20230125
  Transmission Date: 20230417
  Serious: Yes (Hospitalization)
  Sender: FDA-Public Use
  Company Number: None

PATIENT
  Sex: Female

DRUGS (6)
  1. MYCOPHENOLIC ACID [Suspect]
     Active Substance: MYCOPHENOLIC ACID
     Indication: Congenital cystic kidney disease
     Dosage: 250MG ORAL??TAKE 3 CAPSULES BY MOUTH TWICE DAILY
     Route: 048
     Dates: start: 20210209
  2. FENOFIBRATE [Concomitant]
     Active Substance: FENOFIBRATE
  3. FERROUS SULFATE [Concomitant]
     Active Substance: FERROUS SULFATE
  4. METHOCARBAMOL [Concomitant]
     Active Substance: METHOCARBAMOL
  5. MIRALAX [Concomitant]
  6. TACROLIMUS [Concomitant]
     Active Substance: TACROLIMUS

REACTIONS (5)
  - Infection [None]
  - Fatigue [None]
  - Nausea [None]
  - Vomiting [None]
  - Product dose omission issue [None]
